FAERS Safety Report 9121946 (Version 2)
Quarter: 2013Q1

REPORT INFORMATION
  Report Type: Spontaneous
  Country: CZ (occurrence: CZ)
  Receive Date: 20130227
  Receipt Date: 20130307
  Transmission Date: 20140127
  Serious: Yes (Hospitalization)
  Sender: FDA-Public Use
  Company Number: CZ-CELGENEUS-217-21880-13022340

PATIENT
  Age: 68 Year
  Sex: Male
  Weight: 98 kg

DRUGS (3)
  1. REVLIMID [Suspect]
     Indication: PLASMA CELL MYELOMA RECURRENT
     Dosage: 25 MILLIGRAM
     Route: 048
     Dates: start: 20130130, end: 20130216
  2. DEXAMETHASONE [Suspect]
     Indication: PLASMA CELL MYELOMA RECURRENT
     Route: 048
     Dates: start: 20130130, end: 20130213
  3. MLN 9708 [Suspect]
     Indication: PLASMA CELL MYELOMA RECURRENT
     Route: 048
     Dates: start: 20130130

REACTIONS (2)
  - Pulmonary sepsis [Unknown]
  - Thrombocytopenia [Unknown]
